FAERS Safety Report 19700944 (Version 3)
Quarter: 2021Q4

REPORT INFORMATION
  Report Type: Report from Study
  Country: US (occurrence: US)
  Receive Date: 20210813
  Receipt Date: 20211122
  Transmission Date: 20220303
  Serious: Yes (Death, Hospitalization, Other)
  Sender: FDA-Public Use
  Company Number: US-TAKEDA-2021TUS050690

PATIENT
  Age: 58 Year
  Sex: Female

DRUGS (8)
  1. TEDUGLUTIDE [Suspect]
     Active Substance: TEDUGLUTIDE
     Indication: Short-bowel syndrome
     Dosage: 4.2 MILLIGRAM, QD
     Route: 058
     Dates: start: 20210507
  2. TEDUGLUTIDE [Suspect]
     Active Substance: TEDUGLUTIDE
     Indication: Short-bowel syndrome
     Dosage: 4.2 MILLIGRAM, QD
     Route: 058
     Dates: start: 20210507
  3. TEDUGLUTIDE [Suspect]
     Active Substance: TEDUGLUTIDE
     Indication: Short-bowel syndrome
     Dosage: 4.2 MILLIGRAM, QD
     Route: 058
     Dates: start: 20210507
  4. TEDUGLUTIDE [Suspect]
     Active Substance: TEDUGLUTIDE
     Indication: Short-bowel syndrome
     Dosage: 4.2 MILLIGRAM, QD
     Route: 058
     Dates: start: 20210507
  5. TEDUGLUTIDE [Suspect]
     Active Substance: TEDUGLUTIDE
     Dosage: 2.1 MILLIGRAM, QOD
     Route: 058
     Dates: start: 20210507, end: 20211115
  6. TEDUGLUTIDE [Suspect]
     Active Substance: TEDUGLUTIDE
     Dosage: 2.1 MILLIGRAM, QOD
     Route: 058
     Dates: start: 20210507, end: 20211115
  7. TEDUGLUTIDE [Suspect]
     Active Substance: TEDUGLUTIDE
     Dosage: 2.1 MILLIGRAM, QOD
     Route: 058
     Dates: start: 20210507, end: 20211115
  8. TEDUGLUTIDE [Suspect]
     Active Substance: TEDUGLUTIDE
     Dosage: 2.1 MILLIGRAM, QOD
     Route: 058
     Dates: start: 20210507, end: 20211115

REACTIONS (6)
  - Renal failure [Fatal]
  - Cerebrovascular accident [Fatal]
  - Cardiac arrest [Fatal]
  - Acute kidney injury [Not Recovered/Not Resolved]
  - Depressed level of consciousness [Unknown]
  - Mental disorder [Unknown]

NARRATIVE: CASE EVENT DATE: 20211021
